FAERS Safety Report 18133604 (Version 1)
Quarter: 2020Q3

REPORT INFORMATION
  Report Type: Spontaneous
  Country: US (occurrence: US)
  Receive Date: 20200811
  Receipt Date: 20200811
  Transmission Date: 20201103
  Serious: Yes (Other)
  Sender: FDA-Public Use
  Company Number: US-ACCORD-194363

PATIENT
  Sex: Female

DRUGS (9)
  1. TECENTRIQ [Suspect]
     Active Substance: ATEZOLIZUMAB
     Indication: TRIPLE NEGATIVE BREAST CANCER
     Dates: start: 2012
  2. CARBOPLATIN. [Suspect]
     Active Substance: CARBOPLATIN
     Indication: TRIPLE NEGATIVE BREAST CANCER
     Dates: start: 2012
  3. CYTOXAN [Suspect]
     Active Substance: CYCLOPHOSPHAMIDE
     Indication: TRIPLE NEGATIVE BREAST CANCER
     Dates: start: 2012
  4. GEMZAR [Suspect]
     Active Substance: GEMCITABINE HYDROCHLORIDE
     Indication: TRIPLE NEGATIVE BREAST CANCER
     Dates: start: 2012
  5. ABRAXANE [Suspect]
     Active Substance: PACLITAXEL
     Indication: TRIPLE NEGATIVE BREAST CANCER
     Dates: start: 2012
  6. DOXORUBICIN [Suspect]
     Active Substance: DOXORUBICIN
     Indication: TRIPLE NEGATIVE BREAST CANCER
     Dates: start: 2012
  7. TAXOL [Suspect]
     Active Substance: PACLITAXEL
     Indication: TRIPLE NEGATIVE BREAST CANCER
     Dates: start: 2012
  8. XELODA [Suspect]
     Active Substance: CAPECITABINE
     Indication: TRIPLE NEGATIVE BREAST CANCER
     Dates: start: 2012
  9. HALAVEN [Suspect]
     Active Substance: ERIBULIN MESYLATE
     Indication: TRIPLE NEGATIVE BREAST CANCER
     Dates: start: 2012

REACTIONS (5)
  - Drug ineffective [Unknown]
  - Metastases to lung [Unknown]
  - Off label use [Unknown]
  - Metastases to skin [Unknown]
  - Breast mass [Unknown]

NARRATIVE: CASE EVENT DATE: 201908
